FAERS Safety Report 21720928 (Version 1)
Quarter: 2022Q4

REPORT INFORMATION
  Report Type: Spontaneous
  Country: US (occurrence: US)
  Receive Date: 20221213
  Receipt Date: 20221213
  Transmission Date: 20230112
  Serious: Yes (Other)
  Sender: FDA-Public Use
  Company Number: US-TEVA-2022-US-2832762

PATIENT

DRUGS (1)
  1. DEXTROAMPHETAMINE SULFATE [Suspect]
     Active Substance: DEXTROAMPHETAMINE SULFATE
     Indication: Attention deficit hyperactivity disorder
     Route: 065

REACTIONS (10)
  - Mental impairment [Unknown]
  - Erythema [Unknown]
  - Dry mouth [Unknown]
  - Stress [Unknown]
  - Abdominal distension [Unknown]
  - Dry eye [Unknown]
  - Lethargy [Unknown]
  - Feeling hot [Unknown]
  - Anxiety [Unknown]
  - Disturbance in attention [Unknown]
